FAERS Safety Report 14626865 (Version 1)
Quarter: 2018Q1

REPORT INFORMATION
  Report Type: Spontaneous
  Country: US (occurrence: US)
  Receive Date: 20180312
  Receipt Date: 20180312
  Transmission Date: 20180509
  Serious: Yes (Hospitalization)
  Sender: FDA-Public Use
  Company Number: US-JNJFOC-20180307792

PATIENT
  Age: 72 Year
  Sex: Male

DRUGS (8)
  1. ASPIRIN. [Concomitant]
     Active Substance: ASPIRIN
  2. PRILOSEC [Concomitant]
     Active Substance: OMEPRAZOLE MAGNESIUM
  3. IMBRUVICA [Suspect]
     Active Substance: IBRUTINIB
     Indication: MANTLE CELL LYMPHOMA
     Route: 048
  4. PERI-COLACE [Concomitant]
     Active Substance: CASANTHRANOL\DOCUSATE SODIUM
  5. MELATONIN [Concomitant]
     Active Substance: MELATONIN
  6. LASIX [Concomitant]
     Active Substance: FUROSEMIDE
  7. NEURONTIN [Concomitant]
     Active Substance: GABAPENTIN
  8. XANAX [Concomitant]
     Active Substance: ALPRAZOLAM

REACTIONS (8)
  - Large intestine polyp [Unknown]
  - Contusion [Unknown]
  - Oedema peripheral [Unknown]
  - Anaemia [Unknown]
  - Confusional state [Unknown]
  - Gastritis erosive [Unknown]
  - Erosive duodenitis [Unknown]
  - Anxiety [Unknown]

NARRATIVE: CASE EVENT DATE: 201708
